FAERS Safety Report 7864495-3 (Version None)
Quarter: 2011Q4

REPORT INFORMATION
  Report Type: 
  Country: None (occurrence: None)
  Receive Date: 20111028
  Receipt Date: 20111024
  Transmission Date: 20120403
  Serious: No
  Sender: FDA-Public Use
  Company Number: US-PFIZER INC-2011259833

PATIENT
  Sex: Female

DRUGS (4)
  1. DILANTIN [Suspect]
     Indication: CONVULSION
  2. DILANTIN [Suspect]
     Indication: EXTRADURAL HAEMATOMA
     Dosage: 100 MG, 3X/DAY
     Route: 048
     Dates: start: 20100101
  3. ATENOLOL [Concomitant]
     Indication: BLOOD PRESSURE ABNORMAL
     Dosage: 12.5MG DAILY
     Dates: start: 19910101
  4. LEVOTHYROXINE SODIUM [Concomitant]
     Indication: THYROID DISORDER
     Dosage: 88 UG, DAILY
     Dates: start: 19980101

REACTIONS (2)
  - FATIGUE [None]
  - ASTHENIA [None]
